FAERS Safety Report 14274638 (Version 1)
Quarter: 2017Q4

REPORT INFORMATION
  Report Type: Spontaneous
  Country: FR (occurrence: FR)
  Receive Date: 20171212
  Receipt Date: 20171212
  Transmission Date: 20180321
  Serious: Yes (Hospitalization)
  Sender: FDA-Public Use
  Company Number: FR-MERCK KGAA-2037022

PATIENT
  Age: 29 Year
  Sex: Female

DRUGS (2)
  1. NOVOTHYROX [Suspect]
     Active Substance: LEVOTHYROXINE SODIUM
     Indication: HYPOTHYROIDISM
  2. CERAZETTE [Concomitant]
     Active Substance: DESOGESTREL

REACTIONS (36)
  - Hypoaesthesia [None]
  - Night sweats [None]
  - Mood altered [None]
  - Asthenia [None]
  - Nervousness [None]
  - Transient ischaemic attack [None]
  - Fatigue [None]
  - Loss of personal independence in daily activities [None]
  - Impaired work ability [None]
  - Psychiatric symptom [None]
  - Depression [None]
  - Housebound [None]
  - Stress [None]
  - Irritability [None]
  - Malaise [None]
  - Disturbance in attention [None]
  - Weight increased [None]
  - Abdominal pain [None]
  - Telangiectasia [None]
  - Monoparesis [None]
  - Arthralgia [None]
  - Feeling abnormal [None]
  - Decreased interest [None]
  - Libido decreased [None]
  - Myalgia [None]
  - Nausea [None]
  - Muscle spasms [None]
  - Visual impairment [None]
  - Job dissatisfaction [None]
  - Insomnia [None]
  - Disorientation [None]
  - Hypertension [None]
  - Discomfort [None]
  - Apathy [None]
  - Vertigo [None]
  - Headache [None]

NARRATIVE: CASE EVENT DATE: 2017
